FAERS Safety Report 5147650-5 (Version None)
Quarter: 2006Q4

REPORT INFORMATION
  Report Type: 
  Country: None (occurrence: None)
  Receive Date: 20060915
  Receipt Date: 20060410
  Transmission Date: 20070319
  Serious: Yes (Hospitalization)
  Sender: FDA-Public Use
  Company Number: S06-USA-01449-01

PATIENT
  Age: 34 Year
  Sex: Female

DRUGS (2)
  1. CELEXA [Suspect]
     Indication: POSTPARTUM STRESS DISORDER
     Dosage: 40 MG QD PO
     Route: 048
     Dates: start: 20040101, end: 20040701
  2. ANTIDEPRESSANT (NOS) [Concomitant]

REACTIONS (1)
  - HYPOMANIA [None]
